FAERS Safety Report 12207137 (Version 1)
Quarter: 2016Q1

REPORT INFORMATION
  Report Type: Spontaneous
  Country: US (occurrence: None)
  Receive Date: 20160323
  Receipt Date: 20160323
  Transmission Date: 20160526
  Serious: Yes (Other)
  Sender: FDA-Public Use
  Company Number: None

PATIENT
  Age: 83 Year
  Sex: Male
  Weight: 73.03 kg

DRUGS (15)
  1. MVI [Concomitant]
     Active Substance: VITAMINS
  2. ASPIRIN. [Concomitant]
     Active Substance: ASPIRIN
  3. MUCINEX ER [Concomitant]
  4. LIPITOR [Concomitant]
     Active Substance: ATORVASTATIN CALCIUM
  5. PROTONIX [Concomitant]
     Active Substance: PANTOPRAZOLE SODIUM
  6. CLONAZEPAM. [Concomitant]
     Active Substance: CLONAZEPAM
  7. SINEMET [Concomitant]
     Active Substance: CARBIDOPA\LEVODOPA
  8. FORMOTEROL [Concomitant]
     Active Substance: FORMOTEROL
  9. ELIQUIS [Concomitant]
     Active Substance: APIXABAN
  10. SIMVASTATIN. [Concomitant]
     Active Substance: SIMVASTATIN
  11. AMIODARONE 200MG [Suspect]
     Active Substance: AMIODARONE
     Indication: ARRHYTHMIA
     Dosage: 1 BID ORAL
     Route: 048
     Dates: start: 20151028, end: 20160321
  12. LISINOPRIL. [Concomitant]
     Active Substance: LISINOPRIL
  13. SPIRIVA [Concomitant]
     Active Substance: TIOTROPIUM BROMIDE MONOHYDRATE
  14. NORVASC [Concomitant]
     Active Substance: AMLODIPINE BESYLATE
  15. PULMICORT TURBUHALER [Concomitant]
     Active Substance: BUDESONIDE

REACTIONS (2)
  - Toxicity to various agents [None]
  - Pulmonary toxicity [None]

NARRATIVE: CASE EVENT DATE: 20160129
